FAERS Safety Report 8158176-9 (Version None)
Quarter: 2012Q1

REPORT INFORMATION
  Report Type: 
  Country: None (occurrence: None)
  Receive Date: 20120222
  Receipt Date: 20120214
  Transmission Date: 20120608
  Serious: Yes (Other)
  Sender: FDA-Public Use
  Company Number: US-ASTRAZENECA-2012SE10324

PATIENT
  Sex: Male

DRUGS (10)
  1. METOPROLOL TARTRATE [Suspect]
     Route: 065
  2. ENTERIC ASPIRIN [Concomitant]
  3. ZOCOR [Concomitant]
  4. LISINOPRIL [Suspect]
     Route: 048
  5. ASCORBIC ACID [Concomitant]
  6. GLUCOPHAGE [Concomitant]
  7. GLIMEPIRIDE [Concomitant]
  8. LEXAPRO [Concomitant]
  9. NEXIUM [Suspect]
     Route: 048
  10. PLAVIX [Concomitant]

REACTIONS (7)
  - SQUAMOUS CELL CARCINOMA [None]
  - MALIGNANT MELANOMA [None]
  - EMPHYSEMA [None]
  - DIABETES MELLITUS [None]
  - DEPRESSION [None]
  - CARDIAC DISORDER [None]
  - HYPERTENSION [None]
